FAERS Safety Report 9995515 (Version 1)
Quarter: 2014Q1

REPORT INFORMATION
  Report Type: Spontaneous
  Country: US (occurrence: None)
  Receive Date: 20140306
  Receipt Date: 20140306
  Transmission Date: 20141002
  Serious: Yes (Hospitalization, Other)
  Sender: FDA-Public Use
  Company Number: FK201400670

PATIENT
  Age: 44 Year
  Sex: Female

DRUGS (2)
  1. LIDOCAINE [Suspect]
     Indication: ENDOSCOPY
  2. PROPOFOL (PROPOFOL)(PROPOFOL) [Concomitant]

REACTIONS (2)
  - Anaphylactic reaction [None]
  - Skin reaction [None]
